FAERS Safety Report 7089485-2 (Version None)
Quarter: 2010Q4

REPORT INFORMATION
  Report Type: 
  Country: None (occurrence: None)
  Receive Date: 20101108
  Receipt Date: 20101028
  Transmission Date: 20110411
  Serious: Yes (Hospitalization, Other)
  Sender: FDA-Public Use
  Company Number: US-CELGENEUS-163-21880-10102922

PATIENT
  Sex: Female

DRUGS (4)
  1. REVLIMID [Suspect]
     Indication: MULTIPLE MYELOMA
     Route: 048
     Dates: start: 20101001
  2. REVLIMID [Suspect]
     Route: 048
     Dates: start: 20100701
  3. REVLIMID [Suspect]
     Route: 048
     Dates: start: 20100401
  4. REVLIMID [Suspect]
     Route: 048
     Dates: start: 20090801

REACTIONS (4)
  - BONE LESION [None]
  - HYPERSENSITIVITY [None]
  - RIB FRACTURE [None]
  - WEIGHT DECREASED [None]
